FAERS Safety Report 22296553 (Version 1)
Quarter: 2023Q2

REPORT INFORMATION
  Report Type: Spontaneous
  Country: US (occurrence: US)
  Receive Date: 20230508
  Receipt Date: 20230508
  Transmission Date: 20230721
  Serious: No
  Sender: FDA-Public Use
  Company Number: US-AMGEN-USASP2023076976

PATIENT
  Age: 51 Year
  Sex: Female

DRUGS (1)
  1. BEVACIZUMAB [Suspect]
     Active Substance: BEVACIZUMAB
     Indication: Ascites
     Dosage: 15 MILLIGRAM/KG
     Route: 065

REACTIONS (3)
  - Tumour marker increased [Unknown]
  - Therapy partial responder [Unknown]
  - Off label use [Unknown]
